FAERS Safety Report 14340843 (Version 2)
Quarter: 2018Q1

REPORT INFORMATION
  Report Type: Spontaneous
  Country: HR (occurrence: HR)
  Receive Date: 20180102
  Receipt Date: 20180209
  Transmission Date: 20180509
  Serious: Yes (Death, Hospitalization)
  Sender: FDA-Public Use
  Company Number: HR-B.I. PHARMACEUTICALS,INC./RIDGEFIELD-2017-12-000301

PATIENT
  Age: 86 Year
  Sex: Female

DRUGS (8)
  1. NORPREXANIL [Concomitant]
     Active Substance: UNSPECIFIED INGREDIENT
     Indication: PRODUCT USED FOR UNKNOWN INDICATION
     Dosage: DF = 10 MG AMLODIPINE BESILATE + 5 MG PERINDOPRIL ARGININE
     Route: 048
     Dates: start: 20171120
  2. ACIPAN [Concomitant]
     Active Substance: PANTOPRAZOLE SODIUM
     Indication: PRODUCT USED FOR UNKNOWN INDICATION
     Dosage: UNKNOWN DAILY DOSE
     Route: 048
  3. PRADAXA [Suspect]
     Active Substance: DABIGATRAN ETEXILATE MESYLATE
     Indication: ATRIAL FIBRILLATION
     Route: 048
     Dates: start: 20171017, end: 20171116
  4. FURSEMID [Concomitant]
     Active Substance: FUROSEMIDE
     Indication: PRODUCT USED FOR UNKNOWN INDICATION
     Dosage: UNKNOWN DAILY DOSAGE
     Route: 048
  5. KLAVOCIN [Concomitant]
     Active Substance: AMOXICILLIN\CLAVULANIC ACID
     Indication: PRODUCT USED FOR UNKNOWN INDICATION
     Route: 048
     Dates: start: 20171120
  6. KALINOR (POTASSIUM BICARBONATE\POTASSIUM CITRATE) [Concomitant]
     Active Substance: POTASSIUM BICARBONATE\POTASSIUM CITRATE
     Indication: PRODUCT USED FOR UNKNOWN INDICATION
     Dosage: DF = 2.057 G CITRIC ACID + 2 G POTASSIUM BICARBONATE + 2.17 G POTASSIUM CITRATE
     Route: 048
  7. BYOL COR [Concomitant]
     Active Substance: BISOPROLOL FUMARATE
     Indication: PRODUCT USED FOR UNKNOWN INDICATION
     Dosage: UNKNOWN DAILY DOSE
     Route: 048
  8. COUPET [Concomitant]
     Active Substance: ROSUVASTATIN CALCIUM
     Indication: PRODUCT USED FOR UNKNOWN INDICATION
     Dosage: UNKNOWN DAILY DOSGE
     Route: 048

REACTIONS (7)
  - Rectal haemorrhage [Recovering/Resolving]
  - Urinary tract infection [Fatal]
  - Suprapubic pain [Recovering/Resolving]
  - Abdominal pain upper [Recovering/Resolving]
  - Anaemia [Fatal]
  - Malignant anorectal neoplasm [Fatal]
  - Cardio-respiratory arrest [Fatal]

NARRATIVE: CASE EVENT DATE: 20171116
